FAERS Safety Report 21969885 (Version 1)
Quarter: 2023Q1

REPORT INFORMATION
  Report Type: Spontaneous
  Country: TW (occurrence: TW)
  Receive Date: 20230208
  Receipt Date: 20230208
  Transmission Date: 20230418
  Serious: Yes (Death, Other)
  Sender: FDA-Public Use
  Company Number: TW-SUN PHARMACEUTICAL INDUSTRIES LTD-2023RR-377522

PATIENT
  Age: 54 Year
  Sex: Female

DRUGS (2)
  1. ERLOTINIB [Suspect]
     Active Substance: ERLOTINIB
     Indication: Lung adenocarcinoma
     Dosage: UNK
     Route: 065
     Dates: start: 2016
  2. AFATINIB [Suspect]
     Active Substance: AFATINIB
     Indication: Lung adenocarcinoma
     Dosage: 30 MILLIGRAM, DAILY
     Route: 065
     Dates: start: 20220324

REACTIONS (4)
  - Disease progression [Fatal]
  - Off label use [Unknown]
  - Dyspnoea exertional [Unknown]
  - Cough [Unknown]
